FAERS Safety Report 6814940-7 (Version None)
Quarter: 2010Q3

REPORT INFORMATION
  Report Type: 
  Country: None (occurrence: None)
  Receive Date: 20100701
  Receipt Date: 20100701
  Transmission Date: 20110219
  Serious: Yes (Life-Threatening, Hospitalization)
  Sender: FDA-Public Use
  Company Number: None

PATIENT
  Sex: Female
  Weight: 73.0291 kg

DRUGS (2)
  1. MEDICAL MARIJUANA [Suspect]
     Dosage: ANY SMOKED AIR
  2. MARIJUANA [Suspect]
     Dosage: MEASUREMENT DAILY RAPE

REACTIONS (5)
  - EUPHORIC MOOD [None]
  - FEELING ABNORMAL [None]
  - HEART RATE ABNORMAL [None]
  - PALPITATIONS [None]
  - PARANOIA [None]
